APPROVED DRUG PRODUCT: XOPENEX HFA
Active Ingredient: LEVALBUTEROL TARTRATE
Strength: EQ 0.045MG BASE/INH
Dosage Form/Route: AEROSOL, METERED;INHALATION
Application: N021730 | Product #001
Applicant: LUPIN INC
Approved: Mar 11, 2005 | RLD: Yes | RS: Yes | Type: RX